FAERS Safety Report 8759638 (Version 4)
Quarter: 2015Q2

REPORT INFORMATION
  Report Type: Report from Study
  Country: DE (occurrence: DE)
  Receive Date: 20120829
  Receipt Date: 20150626
  Transmission Date: 20150821
  Serious: Yes (Hospitalization)
  Sender: FDA-Public Use
  Company Number: DE-UCBSA-017520

PATIENT
  Sex: Female
  Weight: 65 kg

DRUGS (19)
  1. CERTOLIZUMAB PEGOL RA [Suspect]
     Active Substance: CERTOLIZUMAB PEGOL
     Indication: RHEUMATOID ARTHRITIS
     Dosage: 200 MG, NBR OF DOSES: 9
     Route: 058
     Dates: start: 20100430, end: 20110201
  2. TRAMADOLOR [Concomitant]
     Active Substance: TRAMADOL
     Indication: RHEUMATOID ARTHRITIS
     Dosage: 50-100 MG,
     Dates: start: 20100701, end: 201112
  3. METHOTREXATE [Concomitant]
     Active Substance: METHOTREXATE
     Dosage: 20 MG, WEEKLY (QW)
     Route: 058
  4. FOLSAN [Concomitant]
     Active Substance: FOLIC ACID
     Dosage: 5MG; WEEKLY
  5. FOLSAN [Concomitant]
     Active Substance: FOLIC ACID
     Dosage: 10MG;QAM
  6. PANTOZOL [Concomitant]
     Active Substance: PANTOPRAZOLE SODIUM
     Dosage: 40MG
  7. METEX [Concomitant]
     Active Substance: METFORMIN HYDROCHLORIDE
     Indication: RHEUMATOID ARTHRITIS
     Dosage: QS
     Dates: start: 200605
  8. CALCIUM [Concomitant]
     Active Substance: CALCIUM
  9. FOLSAURE [Concomitant]
     Active Substance: FOLIC ACID
     Indication: DRUG TOXICITY PROPHYLAXIS
     Dosage: QS
     Dates: start: 20050414
  10. DECORTIN [Concomitant]
     Active Substance: PREDNISONE
     Dosage: 5MG;QAM
  11. ARCOXIA [Concomitant]
     Active Substance: ETORICOXIB
     Indication: RHEUMATOID ARTHRITIS
     Dosage: 90 MG, AS NEEDED (PRN)
     Dates: start: 200703
  12. LEDERLON [Concomitant]
     Active Substance: TRIAMCINOLONE HEXACETONIDE
     Indication: RHEUMATOID ARTHRITIS
     Dosage: 10 MG, ONCE DAILY (QD)
     Dates: start: 20100630, end: 20100630
  13. DECORTIN [Concomitant]
     Active Substance: PREDNISONE
     Dosage: PER DAY
  14. METEX [Concomitant]
     Active Substance: METFORMIN HYDROCHLORIDE
     Indication: RHEUMATOID ARTHRITIS
     Dosage: SUFFICIENT QUANTITY
     Dates: start: 20050404
  15. TEBESIUM [Concomitant]
     Active Substance: ISONIAZID\PYRIDOXINE
     Indication: PULMONARY TUBERCULOSIS
     Dosage: 300 MG, ONCE DAILY (QD)
     Dates: start: 20100505, end: 201102
  16. PREDNISOLONE. [Concomitant]
     Active Substance: PREDNISOLONE
     Indication: RHEUMATOID ARTHRITIS
     Dosage: 5 MG, ONCE DAILY (QD)
     Dates: start: 200007
  17. TRAMADOLOR [Concomitant]
     Active Substance: TRAMADOL
     Dosage: UNK UNK, 3X/DAY (TID)
  18. PANTOZOL [Concomitant]
     Active Substance: PANTOPRAZOLE SODIUM
     Dates: start: 20111007, end: 201110
  19. MAGNESIUM [Concomitant]
     Active Substance: MAGNESIUM

REACTIONS (1)
  - Ophthalmic herpes zoster [Recovered/Resolved]

NARRATIVE: CASE EVENT DATE: 20100730
